FAERS Safety Report 25585464 (Version 1)
Quarter: 2025Q3

REPORT INFORMATION
  Report Type: Spontaneous
  Country: US (occurrence: None)
  Receive Date: 20250718
  Receipt Date: 20250718
  Transmission Date: 20251021
  Serious: No
  Sender: FDA-CTU
  Company Number: None

PATIENT

DRUGS (1)
  1. ESTROGENS [Suspect]
     Active Substance: ESTROGENS

REACTIONS (1)
  - Breast mass [None]

NARRATIVE: CASE EVENT DATE: 20250717
